FAERS Safety Report 9788439 (Version 2)
Quarter: 2014Q1

REPORT INFORMATION
  Report Type: Spontaneous
  Country: US (occurrence: US)
  Receive Date: 20131230
  Receipt Date: 20140121
  Transmission Date: 20141002
  Serious: Yes (Other)
  Sender: FDA-Public Use
  Company Number: US-PFIZER INC-2013370864

PATIENT
  Age: 55 Year
  Sex: Male
  Weight: 111.11 kg

DRUGS (2)
  1. VIAGRA [Suspect]
     Indication: ERECTILE DYSFUNCTION
     Dosage: 100 MG, AS NEEDED
     Route: 048
     Dates: start: 2011
  2. VITAMIN C [Concomitant]
     Dosage: UNK

REACTIONS (1)
  - Testicular disorder [Unknown]
